FAERS Safety Report 25839445 (Version 2)
Quarter: 2025Q4

REPORT INFORMATION
  Report Type: Report from Study
  Country: CO (occurrence: CO)
  Receive Date: 20250924
  Receipt Date: 20251001
  Transmission Date: 20260117
  Serious: Yes (Hospitalization)
  Sender: BIOGEN
  Company Number: CO-BIOGEN-2025BI01324734

PATIENT
  Age: 3 Year
  Sex: Female
  Weight: 10 kg

DRUGS (2)
  1. SPINRAZA [Suspect]
     Active Substance: NUSINERSEN
     Indication: Spinal muscular atrophy
     Route: 050
     Dates: start: 20221103
  2. SPINRAZA [Suspect]
     Active Substance: NUSINERSEN
     Route: 050
     Dates: start: 20220531

REACTIONS (5)
  - Adenovirus infection [Recovered/Resolved]
  - COVID-19 [Recovered/Resolved]
  - Gastritis [Recovered/Resolved]
  - Gastrointestinal hypomotility [Recovered/Resolved]
  - Underweight [Not Recovered/Not Resolved]

NARRATIVE: CASE EVENT DATE: 20250901
